FAERS Safety Report 9158858 (Version 1)
Quarter: 2013Q1

REPORT INFORMATION
  Report Type: Spontaneous
  Country: JP (occurrence: JP)
  Receive Date: 20130313
  Receipt Date: 20130313
  Transmission Date: 20140127
  Serious: Yes (Other)
  Sender: FDA-Public Use
  Company Number: JP-RANBAXY-2013R1-66023

PATIENT
  Age: 32 Year
  Sex: Male

DRUGS (2)
  1. ACICLOVIR [Suspect]
     Indication: OPHTHALMIC HERPES SIMPLEX
     Dosage: UNK
     Route: 065
  2. FLUOROMETHOLONE [Suspect]
     Indication: OPHTHALMIC HERPES SIMPLEX
     Dosage: UNK
     Route: 061

REACTIONS (1)
  - Drug resistance [Unknown]
